FAERS Safety Report 10195865 (Version 1)
Quarter: 2014Q2

REPORT INFORMATION
  Report Type: Spontaneous
  Country: RO (occurrence: None)
  Receive Date: 20140522
  Receipt Date: 20140522
  Transmission Date: 20141212
  Serious: Yes (Death)
  Sender: FDA-Public Use
  Company Number: 2344925

PATIENT
  Age: 71 Year
  Sex: Male

DRUGS (4)
  1. DOCETAXEL [Suspect]
     Indication: PROSTATE CANCER
     Route: 042
     Dates: start: 20140415, end: 20140415
  2. LORATADINE [Concomitant]
  3. RANITIDINE [Concomitant]
  4. DEXMAMETHASONE [Concomitant]

REACTIONS (3)
  - Rectal haemorrhage [None]
  - Diarrhoea [None]
  - Dehydration [None]
